FAERS Safety Report 7814811-3 (Version None)
Quarter: 2011Q4

REPORT INFORMATION
  Report Type: 
  Country: None (occurrence: None)
  Receive Date: 20111013
  Receipt Date: 20111013
  Transmission Date: 20120403
  Serious: Yes (Other)
  Sender: FDA-Public Use
  Company Number: None

PATIENT
  Sex: Female
  Weight: 56.6996 kg

DRUGS (1)
  1. CYMBALTA [Suspect]
     Indication: PAIN IN EXTREMITY
     Dosage: 1 CAPSULE ONCE A DAY
     Dates: start: 20090101, end: 20110101

REACTIONS (4)
  - HYPERHIDROSIS [None]
  - DRY MOUTH [None]
  - TREMOR [None]
  - DIARRHOEA [None]
